FAERS Safety Report 4993404-X (Version None)
Quarter: 2006Q2

REPORT INFORMATION
  Report Type: 
  Country: None (occurrence: None)
  Receive Date: 20060505
  Receipt Date: 20060425
  Transmission Date: 20061013
  Serious: Yes (Hospitalization, Other)
  Sender: FDA-Public Use
  Company Number: DE-JNJFOC-20060304565

PATIENT
  Sex: Female

DRUGS (16)
  1. HALDOL [Suspect]
     Route: 048
  2. HALDOL [Suspect]
     Route: 048
  3. HALDOL [Suspect]
     Indication: DRUG USE FOR UNKNOWN INDICATION
     Route: 048
  4. HALOPERIDOL DECANOATE [Suspect]
     Indication: DRUG USE FOR UNKNOWN INDICATION
     Dosage: SINCE 3 WEEKS
     Route: 030
  5. RISPERDAL [Suspect]
     Indication: DRUG USE FOR UNKNOWN INDICATION
     Dosage: UP TO 4 MG
     Route: 065
  6. HALDOL [Suspect]
     Route: 030
  7. HALDOL [Suspect]
     Route: 030
  8. DELIX [Suspect]
     Indication: DRUG USE FOR UNKNOWN INDICATION
  9. EUGLUAN [Concomitant]
     Indication: DIABETES MELLITUS
     Route: 048
  10. METFORMIN [Concomitant]
     Indication: DIABETES MELLITUS
     Route: 048
  11. ALLOPURINOL [Concomitant]
     Indication: HYPERURICAEMIA
     Route: 048
  12. CARMEN [Concomitant]
     Route: 048
  13. ZINC [Concomitant]
     Route: 048
  14. TAVOR [Concomitant]
  15. KARDIOHERMAL [Concomitant]
     Indication: CANDIDIASIS
     Route: 048
  16. LEFAX [Concomitant]
     Route: 048

REACTIONS (4)
  - HYPERHIDROSIS [None]
  - HYPONATRAEMIA [None]
  - INAPPROPRIATE ANTIDIURETIC HORMONE SECRETION [None]
  - SOMNOLENCE [None]
